FAERS Safety Report 8959093 (Version 1)
Quarter: 2012Q4

REPORT INFORMATION
  Report Type: 
  Country: US (occurrence: US)
  Receive Date: 20121211
  Receipt Date: 20121211
  Transmission Date: 20130627
  Serious: Yes (Hospitalization)
  Sender: FDA-Public Use
  Company Number: US-VERTEX PHARMACEUTICAL INC.-2012-020401

PATIENT
  Age: 51 Year
  Sex: Female

DRUGS (9)
  1. VX-950 (TELAPREVIR) [Suspect]
     Indication: HEPATITIS C
     Dosage: 750 mg, qd
     Route: 048
     Dates: start: 20120524
  2. PEGINTERFERON ALFA-2B [Concomitant]
     Indication: HEPATITIS C
     Dosage: 180 ug/kg/week
     Route: 058
     Dates: start: 20120525
  3. RIBAVIRIN [Concomitant]
     Indication: HEPATITIS C
     Dosage: 120 mg, bid
     Route: 048
     Dates: start: 20120524
  4. COLECALCIFEROL [Concomitant]
     Dosage: UNK
     Dates: start: 20120228
  5. OMEPRAZOLE [Concomitant]
     Dosage: UNK
     Dates: start: 20120531
  6. CITALOPRAM [Concomitant]
     Dosage: UNK
     Dates: start: 20120716
  7. CETRIZINE [Concomitant]
  8. PARACETAMOL [Concomitant]
  9. BIFITERAL [Concomitant]
     Dosage: UNK

REACTIONS (1)
  - Haemorrhoids [Recovered/Resolved]
